FAERS Safety Report 8541667-6 (Version None)
Quarter: 2012Q3

REPORT INFORMATION
  Report Type: 
  Country: None (occurrence: None)
  Receive Date: 20120726
  Receipt Date: 20120717
  Transmission Date: 20120928
  Serious: Yes (Disabling)
  Sender: FDA-Public Use
  Company Number: RU-VIIV HEALTHCARE LIMITED-B0815995A

PATIENT
  Sex: Male
  Weight: 69 kg

DRUGS (5)
  1. ABACAVIR [Suspect]
     Indication: HIV INFECTION
     Dosage: 600MG PER DAY
     Route: 048
     Dates: start: 20100304
  2. DIDANOSINE [Concomitant]
     Indication: HIV INFECTION
     Dosage: 400MG PER DAY
     Route: 048
     Dates: start: 20100304
  3. ISONIAZID [Concomitant]
     Indication: PULMONARY TUBERCULOSIS
     Dosage: 600MG PER DAY
     Route: 048
     Dates: start: 20120610
  4. EFAVIRENZ [Concomitant]
     Indication: HIV INFECTION
     Dosage: 600MG PER DAY
     Route: 048
     Dates: start: 20070104
  5. RIFABUTIN [Concomitant]
     Indication: PULMONARY TUBERCULOSIS
     Dosage: 600MG PER DAY
     Route: 048
     Dates: start: 20120610

REACTIONS (1)
  - ACUTE MYOCARDIAL INFARCTION [None]
